FAERS Safety Report 16789112 (Version 3)
Quarter: 2020Q1

REPORT INFORMATION
  Report Type: Report from Study
  Country: None (occurrence: US)
  Receive Date: 20190910
  Receipt Date: 20200305
  Transmission Date: 20200409
  Serious: Yes (Hospitalization)
  Sender: FDA-Public Use
  Company Number: US-ABBVIE-19K-163-2916203-00

PATIENT
  Age: 73 Year
  Sex: Female
  Weight: 58.11 kg

DRUGS (4)
  1. NASAL SPRAY II [Concomitant]
     Indication: NASOPHARYNGITIS
  2. HUMIRA [Suspect]
     Active Substance: ADALIMUMAB
     Indication: CROHN^S DISEASE
     Route: 058
     Dates: start: 2015
  3. VITAMIN D [Concomitant]
     Active Substance: VITAMIN D NOS
     Indication: SUPPLEMENTATION THERAPY
  4. CLARITIN [Concomitant]
     Active Substance: LORATADINE
     Indication: HYPERSENSITIVITY

REACTIONS (6)
  - Ureteric obstruction [Recovered/Resolved]
  - Fatigue [Recovered/Resolved]
  - Procedural pain [Recovering/Resolving]
  - Colonoscopy [Unknown]
  - Renal disorder [Recovering/Resolving]
  - Renal injury [Recovered/Resolved with Sequelae]

NARRATIVE: CASE EVENT DATE: 20190825
